FAERS Safety Report 19762429 (Version 1)
Quarter: 2021Q3

REPORT INFORMATION
  Report Type: Spontaneous
  Country: IE (occurrence: IE)
  Receive Date: 20210829
  Receipt Date: 20210829
  Transmission Date: 20211014
  Serious: Yes (Disabling)
  Sender: FDA-Public Use
  Company Number: None

PATIENT
  Age: 21 Year
  Sex: Female
  Weight: 50 kg

DRUGS (8)
  1. HYDROCORTISONE. [Suspect]
     Active Substance: HYDROCORTISONE
  2. VITAMIN C [Concomitant]
     Active Substance: ASCORBIC ACID
  3. EUMOVATE [Suspect]
     Active Substance: CLOBETASONE BUTYRATE
  4. CETRINE [Concomitant]
     Active Substance: CETIRIZINE HYDROCHLORIDE
  5. COLLAGEN SUPPLEMENTS. [Concomitant]
  6. VIT D [Concomitant]
     Active Substance: VITAMIN D NOS
  7. CORTISONE [Suspect]
     Active Substance: CORTISONE
     Indication: ECZEMA
     Route: 061
  8. PROTOPIC [Suspect]
     Active Substance: TACROLIMUS

REACTIONS (14)
  - Insomnia [None]
  - Scratch [None]
  - Burning sensation [None]
  - Drug dependence [None]
  - Steroid withdrawal syndrome [None]
  - Vision blurred [None]
  - Skin discharge [None]
  - Eczema [None]
  - Therapy non-responder [None]
  - Application site burn [None]
  - Erythema [None]
  - Hypoaesthesia [None]
  - Skin exfoliation [None]
  - Rash [None]
